FAERS Safety Report 17006045 (Version 1)
Quarter: 2019Q4

REPORT INFORMATION
  Report Type: Spontaneous
  Country: US (occurrence: US)
  Receive Date: 20190926
  Receipt Date: 20190926
  Transmission Date: 20200122
  Serious: No
  Sender: FDA-Public Use
  Company Number: None

PATIENT
  Age: 72 Year
  Sex: Female

DRUGS (1)
  1. ESTRADIOL VAL INJ 20MG/ML [Suspect]
     Active Substance: ESTRADIOL VALERATE
     Indication: MENOPAUSE
     Route: 030
     Dates: start: 201909

REACTIONS (1)
  - Off label use [None]

NARRATIVE: CASE EVENT DATE: 20190926
